FAERS Safety Report 12963552 (Version 1)
Quarter: 2016Q4

REPORT INFORMATION
  Report Type: Spontaneous
  Country: FR (occurrence: FR)
  Receive Date: 20161122
  Receipt Date: 20161122
  Transmission Date: 20170207
  Serious: Yes (Hospitalization)
  Sender: FDA-Public Use
  Company Number: FR-009507513-1611FRA009591

PATIENT
  Age: 55 Year
  Sex: Male

DRUGS (5)
  1. VIRAFERONPEG [Suspect]
     Active Substance: PEGINTERFERON ALFA-2B
     Indication: HEPATITIS C
     Dosage: 1 DF (0.1429 DF), QW
     Route: 058
     Dates: start: 20070119, end: 200703
  2. LEXOMIL ROCHE [Concomitant]
     Active Substance: BROMAZEPAM
  3. DEPAKINE CHRONO [Concomitant]
     Active Substance: VALPROATE SODIUM
     Dosage: PROLONGED RELEASE FILM-COATED TABLET
  4. GAVISCON (CALCIUM CARBONATE (+) SODIUM ALGINATE (+) SODIUM BICARBONATE [Concomitant]
     Active Substance: CALCIUM CARBONATE\SODIUM ALGINATE\SODIUM BICARBONATE
  5. DAFALGAN [Concomitant]
     Active Substance: ACETAMINOPHEN

REACTIONS (6)
  - Genital erythema [Recovered/Resolved]
  - Livedo reticularis [Recovered/Resolved]
  - Chapped lips [Recovered/Resolved]
  - Erythema [Recovered/Resolved]
  - Injection site erythema [Recovered/Resolved]
  - Pruritus generalised [Recovered/Resolved]

NARRATIVE: CASE EVENT DATE: 20070219
